FAERS Safety Report 10648901 (Version 1)
Quarter: 2014Q4

REPORT INFORMATION
  Report Type: Spontaneous
  Country: DE (occurrence: DE)
  Receive Date: 20141212
  Receipt Date: 20141212
  Transmission Date: 20150529
  Serious: Yes (Congenital Anomaly)
  Sender: FDA-Public Use
  Company Number: PHHY2014DE157443

PATIENT
  Age: 1 Day
  Sex: Male

DRUGS (9)
  1. METOPROLOL [Suspect]
     Active Substance: METOPROLOL
     Dosage: (MATERNAL DOSE 50 MG, TID)
     Route: 064
  2. DIAZEPAM. [Concomitant]
     Active Substance: DIAZEPAM
     Route: 064
  3. VALSARTAN. [Suspect]
     Active Substance: VALSARTAN
     Dosage: (MATERNAL DOSE 160 MG, QD)
     Route: 064
  4. THYROXIN [Concomitant]
     Active Substance: LEVOTHYROXINE
     Dosage: UNK
     Route: 064
  5. DIHYDRALAZINE [Concomitant]
     Route: 064
  6. METHYLDOPA. [Concomitant]
     Active Substance: METHYLDOPA
     Dosage: UNK
     Route: 064
  7. FOLIO                              /00349401/ [Concomitant]
     Dosage: UNK
     Route: 064
  8. HYDROCHLOROTHIAZIDE. [Suspect]
     Active Substance: HYDROCHLOROTHIAZIDE
     Dosage: (MATERNAL DOSE 25 MG, BID)
     Route: 064
  9. NOVORAPID [Concomitant]
     Active Substance: INSULIN ASPART
     Dosage: UNK
     Route: 064

REACTIONS (6)
  - Pulmonary valve stenosis congenital [Unknown]
  - Hypoacusis [Unknown]
  - Ventricular septal defect [Unknown]
  - Hypospadias [Unknown]
  - Patent ductus arteriosus [Unknown]
  - Atrial septal defect [Unknown]

NARRATIVE: CASE EVENT DATE: 20130619
